FAERS Safety Report 10016546 (Version 2)
Quarter: 2014Q1

REPORT INFORMATION
  Report Type: Spontaneous
  Country: US (occurrence: US)
  Receive Date: 20140317
  Receipt Date: 20140326
  Transmission Date: 20141002
  Serious: No
  Sender: FDA-Public Use
  Company Number: US-GILEAD-2014-0096795

PATIENT
  Age: 71 Year
  Sex: Female

DRUGS (20)
  1. LETAIRIS [Suspect]
     Indication: PULMONARY HYPERTENSION
     Dosage: 5 MG, QD
     Route: 048
     Dates: start: 20140303, end: 20140307
  2. HYDROXYCHLOROQUINE [Concomitant]
  3. GLIPIZIDE [Concomitant]
  4. FUROSEMIDE [Concomitant]
  5. TIKOSYN [Concomitant]
  6. WARFARIN [Concomitant]
  7. HYDROCODONE [Concomitant]
  8. OMEPRAZOLE [Concomitant]
  9. SPIRONOLACTONE [Concomitant]
  10. NORVASC [Concomitant]
  11. XOPENEX [Concomitant]
  12. LEVOTHYROXINE [Concomitant]
  13. METOPROLOL [Concomitant]
  14. LOSARTAN [Concomitant]
  15. LORATADINE [Concomitant]
  16. ASPIRIN [Concomitant]
  17. FLOVENT [Concomitant]
  18. SPIRIVA HANDIHALER [Concomitant]
  19. FLONASE                            /00908302/ [Concomitant]
  20. VITAMIN B COMPLEX WITH VITAMIN C   /02146701/ [Concomitant]

REACTIONS (3)
  - Fluid retention [Recovered/Resolved]
  - Dyspnoea [Unknown]
  - Oedema peripheral [Unknown]
